FAERS Safety Report 7138017-9 (Version None)
Quarter: 2010Q4

REPORT INFORMATION
  Report Type: 
  Country: None (occurrence: None)
  Receive Date: 20101206
  Receipt Date: 20101201
  Transmission Date: 20110411
  Serious: Yes (Hospitalization)
  Sender: FDA-Public Use
  Company Number: US-PFIZER INC-US-WYE-H16993910

PATIENT
  Sex: Female
  Weight: 90.7 kg

DRUGS (1)
  1. PROTONIX [Suspect]
     Indication: GASTRIC DISORDER
     Dosage: 40 MG, 1X/DAY
     Route: 048
     Dates: start: 20080101, end: 20100701

REACTIONS (3)
  - DRUG INEFFECTIVE [None]
  - FATIGUE [None]
  - HAEMATEMESIS [None]
